FAERS Safety Report 21918417 (Version 1)
Quarter: 2023Q1

REPORT INFORMATION
  Report Type: Report from Study
  Country: US (occurrence: US)
  Receive Date: 20230127
  Receipt Date: 20230127
  Transmission Date: 20230417
  Serious: Yes (Hospitalization)
  Sender: FDA-Public Use
  Company Number: US-ALNYLAM PHARMACEUTICALS, INC.-ALN-2023-000271

PATIENT

DRUGS (1)
  1. OXLUMO [Suspect]
     Active Substance: LUMASIRAN
     Indication: Product used for unknown indication
     Dosage: 72 MILLIGRAM (0.38 ML), ONCE EVERY 3 MONTHS 72.00
     Route: 058
     Dates: start: 20210428

REACTIONS (1)
  - Fall [Unknown]

NARRATIVE: CASE EVENT DATE: 20230118
